FAERS Safety Report 6497248-1 (Version None)
Quarter: 2009Q4

REPORT INFORMATION
  Report Type: 
  Country: None (occurrence: None)
  Receive Date: 20091215
  Receipt Date: 20090710
  Transmission Date: 20100525
  Serious: No
  Sender: FDA-Public Use
  Company Number: A0797597A

PATIENT
  Sex: Male

DRUGS (2)
  1. AVODART [Suspect]
     Indication: URINE FLOW DECREASED
     Route: 048
  2. DOXAZOSIN [Suspect]
     Route: 065

REACTIONS (2)
  - CHEST DISCOMFORT [None]
  - DRUG INEFFECTIVE [None]
